FAERS Safety Report 5237226-3 (Version None)
Quarter: 2007Q1

REPORT INFORMATION
  Report Type: 
  Country: None (occurrence: None)
  Receive Date: 20070213
  Receipt Date: 20070202
  Transmission Date: 20070707
  Serious: Yes (Death)
  Sender: FDA-Public Use
  Company Number: CA-MERCK-0702CAN00005

PATIENT
  Age: 57 Year
  Sex: Female

DRUGS (7)
  1. PRIMAXIN [Suspect]
     Indication: MYCOBACTERIUM ABSCESSUS INFECTION
     Route: 041
  2. AMIKACIN [Suspect]
     Indication: MYCOBACTERIUM ABSCESSUS INFECTION
     Route: 065
  3. AZITHROMYCIN [Suspect]
     Indication: MYCOBACTERIUM ABSCESSUS INFECTION
     Route: 065
  4. CEFOXITIN [Suspect]
     Indication: MYCOBACTERIUM ABSCESSUS INFECTION
     Route: 065
  5. CLOFAZIMINE [Suspect]
     Indication: MYCOBACTERIUM ABSCESSUS INFECTION
     Route: 065
  6. LINEZOLID [Suspect]
     Indication: MYCOBACTERIUM ABSCESSUS INFECTION
     Route: 065
  7. GATIFLOXACIN [Suspect]
     Indication: MYCOBACTERIUM ABSCESSUS INFECTION
     Route: 065

REACTIONS (5)
  - DRUG INTOLERANCE [None]
  - PSEUDOMEMBRANOUS COLITIS [None]
  - RENAL FAILURE [None]
  - SEPSIS [None]
  - SKIN LESION [None]
